FAERS Safety Report 18530085 (Version 1)
Quarter: 2020Q4

REPORT INFORMATION
  Report Type: Report from Study
  Country: DE (occurrence: DE)
  Receive Date: 20201120
  Receipt Date: 20201120
  Transmission Date: 20210114
  Serious: Yes (Hospitalization)
  Sender: FDA-Public Use
  Company Number: DE-TAKEDA-2020TUS049549

PATIENT
  Age: 46 Year
  Sex: Female

DRUGS (12)
  1. TEDUGLUTIDE [Suspect]
     Active Substance: TEDUGLUTIDE
     Indication: SHORT-BOWEL SYNDROME
     Dosage: 2.45 MILLIGRAM
     Route: 065
     Dates: start: 20170719, end: 20170720
  2. TEDUGLUTIDE [Suspect]
     Active Substance: TEDUGLUTIDE
     Dosage: 1.25 MILLIGRAM
     Route: 065
     Dates: start: 20170720, end: 20200805
  3. TEDUGLUTIDE [Suspect]
     Active Substance: TEDUGLUTIDE
     Indication: SHORT-BOWEL SYNDROME
     Dosage: 2.45 MILLIGRAM
     Route: 065
     Dates: start: 20170719, end: 20170720
  4. TEDUGLUTIDE [Suspect]
     Active Substance: TEDUGLUTIDE
     Indication: SHORT-BOWEL SYNDROME
     Dosage: 2.45 MILLIGRAM
     Route: 065
     Dates: start: 20170719, end: 20170720
  5. LERCANIDIPINE [Concomitant]
     Active Substance: LERCANIDIPINE
     Indication: HYPERTENSION
     Dosage: 20 MILLIGRAM, QD
     Route: 048
     Dates: start: 201906
  6. DIHYDRALAZINE [Concomitant]
     Active Substance: DIHYDRALAZINE
     Indication: HYPERTENSION
     Dosage: 29 MILLIGRAM, QD
     Route: 048
     Dates: start: 201906
  7. TEDUGLUTIDE [Suspect]
     Active Substance: TEDUGLUTIDE
     Indication: SHORT-BOWEL SYNDROME
     Dosage: 2.45 MILLIGRAM
     Route: 065
     Dates: start: 20170719, end: 20170720
  8. CANDESARTAN. [Concomitant]
     Active Substance: CANDESARTAN
     Indication: HYPERTENSION
     Dosage: 16 MILLIGRAM, BID
     Route: 048
     Dates: start: 201906
  9. TEDUGLUTIDE [Suspect]
     Active Substance: TEDUGLUTIDE
     Dosage: 1.25 MILLIGRAM
     Route: 065
     Dates: start: 20170720, end: 20200805
  10. TEDUGLUTIDE [Suspect]
     Active Substance: TEDUGLUTIDE
     Dosage: 1.25 MILLIGRAM
     Route: 065
     Dates: start: 20170720, end: 20200805
  11. DOXAZOSIN [Concomitant]
     Active Substance: DOXAZOSIN MESYLATE
     Indication: HYPERTENSION
     Dosage: 4 MILLIGRAM, BID
     Route: 048
     Dates: start: 201906
  12. TEDUGLUTIDE [Suspect]
     Active Substance: TEDUGLUTIDE
     Dosage: 1.25 MILLIGRAM
     Route: 065
     Dates: start: 20170720, end: 20200805

REACTIONS (7)
  - Hypophosphataemia [Not Recovered/Not Resolved]
  - Device dislocation [Recovered/Resolved]
  - Hypokalaemia [Not Recovered/Not Resolved]
  - Abdominal pain upper [Recovered/Resolved]
  - Syncope [Recovered/Resolved]
  - Hepatic enzyme increased [Not Recovered/Not Resolved]
  - Magnesium deficiency [Not Recovered/Not Resolved]

NARRATIVE: CASE EVENT DATE: 201902
